FAERS Safety Report 6457524-5 (Version None)
Quarter: 2009Q4

REPORT INFORMATION
  Report Type: 
  Country: None (occurrence: None)
  Receive Date: 20091125
  Receipt Date: 20091113
  Transmission Date: 20100525
  Serious: Yes (Hospitalization)
  Sender: FDA-Public Use
  Company Number: PHHY2009MX49874

PATIENT
  Age: 80 Year
  Sex: Female
  Weight: 58 kg

DRUGS (2)
  1. DIOVAN HCT [Suspect]
     Indication: HYPERTENSION
     Dosage: 1 TABLET PER DAY
     Route: 065
     Dates: end: 20091014
  2. BI-EGLUCON [Concomitant]

REACTIONS (3)
  - ABDOMINAL PAIN [None]
  - HAEMORRHAGE [None]
  - POLYPECTOMY [None]
